FAERS Safety Report 6342665-3 (Version None)
Quarter: 2009Q3

REPORT INFORMATION
  Report Type: 
  Country: None (occurrence: None)
  Receive Date: 20090908
  Receipt Date: 20090903
  Transmission Date: 20100115
  Serious: Yes (Death, Life-Threatening, Other)
  Sender: FDA-Public Use
  Company Number: FR-ROXANE LABORATORIES, INC.-2009-RO-00909RO

PATIENT
  Weight: 64 kg

DRUGS (3)
  1. DIGOXIN [Suspect]
  2. DIGIDOT [Concomitant]
     Indication: DRUG TOXICITY
  3. ATROPINE [Concomitant]
     Indication: BRADYCARDIA

REACTIONS (3)
  - ARRHYTHMIA [None]
  - BRADYCARDIA [None]
  - DRUG TOXICITY [None]
